FAERS Safety Report 9522759 (Version 1)
Quarter: 2013Q1

REPORT INFORMATION
  Report Type: Spontaneous
  Country: US (occurrence: None)
  Receive Date: 20130305
  Receipt Date: 20130305
  Transmission Date: 20140127
  Serious: Yes (Other)
  Sender: FDA-Public Use
  Company Number: 163-21880-12013300

PATIENT
  Age: 88 Year
  Sex: Female

DRUGS (4)
  1. REVLIMID [Suspect]
     Indication: PLASMA CELL MYELOMA
     Dosage: 5 MG, 1 IN 1 D, PO
     Route: 048
     Dates: start: 20061115
  2. WARFARIN (WARFARIN) (UNKNOWN) [Concomitant]
  3. VITAMIN C [Concomitant]
  4. ENOXAPARIN (ENOXAPARIN) (UNKNOWN) [Concomitant]

REACTIONS (2)
  - Thrombosis [None]
  - Diarrhoea [None]
